FAERS Safety Report 9222456 (Version 1)
Quarter: 2013Q2

REPORT INFORMATION
  Report Type: Report from Study
  Country: US (occurrence: US)
  Receive Date: 20130410
  Receipt Date: 20130410
  Transmission Date: 20140414
  Serious: No
  Sender: FDA-Public Use
  Company Number: US-VERTEX PHARMACEUTICALS INC.-2013-004602

PATIENT
  Age: 52 Year
  Sex: Female
  Weight: 63 kg

DRUGS (7)
  1. VX-950 (TELAPREVIR) [Suspect]
     Indication: HEPATITIS C
     Dosage: 750 MG, TID
     Route: 048
  2. LISINOPRIL [Concomitant]
     Dosage: 20 MG, UNK
  3. TYLENOL [Concomitant]
  4. BENADRYL [Concomitant]
     Dosage: 25 MG, UNK
  5. PROTONIX [Concomitant]
     Dosage: 40 MG, UNK
  6. PROCHLORPERAZ [Concomitant]
     Dosage: 5 MG, UNK
  7. SARNA [Concomitant]

REACTIONS (4)
  - Insomnia [Recovered/Resolved]
  - Rash papular [Unknown]
  - Dysgeusia [Unknown]
  - Nausea [Unknown]
